FAERS Safety Report 9879822 (Version 1)
Quarter: 2014Q1

REPORT INFORMATION
  Report Type: Spontaneous
  Country: GB (occurrence: GB)
  Receive Date: 20140206
  Receipt Date: 20140206
  Transmission Date: 20141002
  Serious: Yes (Disabling)
  Sender: FDA-Public Use
  Company Number: PHHY2014GB011607

PATIENT
  Age: 75 Year
  Sex: Female
  Weight: 83 kg

DRUGS (1)
  1. CO-CODAMOL [Suspect]
     Dates: start: 20140122

REACTIONS (1)
  - Depression [Recovered/Resolved]
